FAERS Safety Report 7539119-5 (Version None)
Quarter: 2011Q2

REPORT INFORMATION
  Report Type: 
  Country: None (occurrence: None)
  Receive Date: 20110610
  Receipt Date: 20010410
  Transmission Date: 20111010
  Serious: Yes (Hospitalization)
  Sender: FDA-Public Use
  Company Number: PHBS2001BR13483

PATIENT
  Age: 81 Year
  Sex: Female
  Weight: 80 kg

DRUGS (1)
  1. STARLIX [Suspect]
     Dosage: 120 MG/DAY

REACTIONS (1)
  - CEREBROVASCULAR ACCIDENT [None]
